FAERS Safety Report 10067674 (Version 1)
Quarter: 2014Q2

REPORT INFORMATION
  Report Type: Spontaneous
  Country: US (occurrence: None)
  Receive Date: 20140401
  Receipt Date: 20140401
  Transmission Date: 20141212
  Serious: Yes (Hospitalization)
  Sender: FDA-Public Use
  Company Number: PHEH2013US012769

PATIENT
  Sex: Female

DRUGS (3)
  1. TASIGNA [Suspect]
     Indication: CHRONIC MYELOID LEUKAEMIA
     Dates: start: 201109
  2. PERCOCET (OXYCODONE HYDROCHLORIDE, PARACETAMOL) [Concomitant]
  3. DILAUDID (HYDROMORPHONE HYDROCHLORIDE) [Concomitant]

REACTIONS (3)
  - Renal failure [None]
  - Liver function test abnormal [None]
  - Jaundice [None]
